FAERS Safety Report 12742487 (Version 2)
Quarter: 2016Q4

REPORT INFORMATION
  Report Type: Spontaneous
  Country: JP (occurrence: JP)
  Receive Date: 20160914
  Receipt Date: 20161003
  Transmission Date: 20170207
  Serious: Yes (Other)
  Sender: FDA-Public Use
  Company Number: JP-009507513-1609JPN004204

PATIENT
  Sex: Male

DRUGS (1)
  1. TIENAM FOR INTRAVENOUS DRIP INFUSION (KIT) [Suspect]
     Active Substance: CILASTATIN SODIUM\IMIPENEM
     Indication: SEPSIS
     Dosage: DAILY DOSAGE UNKNOWN
     Route: 041

REACTIONS (2)
  - Seizure [Recovered/Resolved]
  - Shock symptom [Recovered/Resolved]
